FAERS Safety Report 10156670 (Version 1)
Quarter: 2014Q2

REPORT INFORMATION
  Report Type: Spontaneous
  Country: BR (occurrence: BR)
  Receive Date: 20140507
  Receipt Date: 20140507
  Transmission Date: 20141212
  Serious: Yes (Other)
  Sender: FDA-Public Use
  Company Number: BR-ELI_LILLY_AND_COMPANY-BR201404008865

PATIENT
  Sex: Female

DRUGS (8)
  1. CYMBALTA [Suspect]
     Indication: DEPRESSION
     Dosage: 60 MG, QD
     Route: 048
     Dates: start: 2008, end: 201201
  2. CYMBALTA [Suspect]
     Indication: GENERALISED ANXIETY DISORDER
     Dosage: 60 MG, BID
     Route: 048
     Dates: start: 2008, end: 201201
  3. CYMBALTA [Suspect]
     Dosage: UNK, UNKNOWN
     Route: 048
     Dates: start: 201401
  4. SEROQUEL [Concomitant]
     Indication: MOOD ALTERED
     Dosage: 100 MG, BID
     Route: 065
  5. LAMITOR [Concomitant]
     Indication: MOOD ALTERED
     Dosage: 100 MG, BID
     Route: 065
  6. RIVOTRIL [Concomitant]
     Indication: INSOMNIA
     Dosage: 2 MG, QD
     Route: 065
  7. RIVOTRIL [Concomitant]
     Indication: ANXIETY
  8. LITHIUM [Concomitant]
     Indication: DEPRESSION
     Dosage: UNK, UNKNOWN
     Route: 065

REACTIONS (2)
  - Cataract [Unknown]
  - Drug ineffective [Unknown]
